FAERS Safety Report 9543386 (Version 2)
Quarter: 2013Q4

REPORT INFORMATION
  Report Type: Spontaneous
  Country: JP (occurrence: JP)
  Receive Date: 20130923
  Receipt Date: 20131006
  Transmission Date: 20140711
  Serious: Yes (Other)
  Sender: FDA-Public Use
  Company Number: JP-PFIZER INC-2013264416

PATIENT
  Age: 36 Year
  Sex: Female

DRUGS (1)
  1. NASANYL [Suspect]
     Indication: UTERINE LEIOMYOMA
     Dosage: UNK
     Route: 045
     Dates: start: 20130908, end: 20130913

REACTIONS (1)
  - Deafness neurosensory [Recovering/Resolving]
